FAERS Safety Report 15101496 (Version 1)
Quarter: 2018Q3

REPORT INFORMATION
  Report Type: Spontaneous
  Country: CA (occurrence: CA)
  Receive Date: 20180703
  Receipt Date: 20180703
  Transmission Date: 20181010
  Serious: Yes (Other)
  Sender: FDA-Public Use
  Company Number: CA-GLAXOSMITHKLINE-CA2018GSK116352

PATIENT
  Sex: Female
  Weight: 75 kg

DRUGS (2)
  1. COREG [Suspect]
     Active Substance: CARVEDILOL
     Indication: CARDIAC FLUTTER
     Dosage: 3.125 MG, BID
     Route: 048
  2. REPATHA [Suspect]
     Active Substance: EVOLOCUMAB
     Indication: BLOOD CHOLESTEROL
     Dosage: 420 MG, UNK (Q2WK)
     Route: 058
     Dates: start: 20160608

REACTIONS (2)
  - Blood pressure decreased [Unknown]
  - Cardiac flutter [Unknown]
